FAERS Safety Report 7345565-5 (Version None)
Quarter: 2011Q1

REPORT INFORMATION
  Report Type: 
  Country: None (occurrence: None)
  Receive Date: 20110310
  Receipt Date: 20110303
  Transmission Date: 20110831
  Serious: Yes (Hospitalization)
  Sender: FDA-Public Use
  Company Number: US-B.I. PHARMACEUTICALS,INC./RIDGEFIELD-2011-BP-01934BP

PATIENT
  Age: 83 Year
  Sex: Male

DRUGS (5)
  1. ATENOLOL [Concomitant]
  2. PRADAXA [Suspect]
     Indication: ATRIAL FIBRILLATION
     Dosage: 300 MG
     Route: 048
     Dates: start: 20110113
  3. PRADAXA [Suspect]
     Indication: ANTICOAGULANT THERAPY
  4. LEVOTHYROXINE SODIUM [Concomitant]
  5. LISINOPRIL [Concomitant]

REACTIONS (3)
  - HYPOAESTHESIA [None]
  - CONTUSION [None]
  - ASTHENIA [None]
